FAERS Safety Report 4853714-3 (Version None)
Quarter: 2005Q4

REPORT INFORMATION
  Report Type: 
  Country: None (occurrence: None)
  Receive Date: 20051212
  Receipt Date: 20051206
  Transmission Date: 20060501
  Serious: Yes (Other)
  Sender: FDA-Public Use
  Company Number: 006199

PATIENT
  Sex: Female

DRUGS (4)
  1. MEDROXYPROGESTERONE ACETATE [Suspect]
     Dosage: ORAL
     Route: 048
     Dates: start: 19800101, end: 20011219
  2. PREMPRO [Suspect]
     Dosage: ORAL
     Route: 048
     Dates: start: 19800101, end: 20011219
  3. ESTRADERM [Suspect]
     Dosage: TRANSDERMAL
     Route: 062
     Dates: start: 19800101, end: 20011219
  4. CLIMARA [Suspect]
     Dosage: TRANSDERMAL
     Route: 062
     Dates: start: 19800101, end: 20011219

REACTIONS (1)
  - BREAST CANCER [None]
